FAERS Safety Report 10524229 (Version 3)
Quarter: 2015Q3

REPORT INFORMATION
  Report Type: Report from Study
  Country: JP (occurrence: JP)
  Receive Date: 20141017
  Receipt Date: 20150918
  Transmission Date: 20151125
  Serious: Yes (Hospitalization)
  Sender: FDA-Public Use
  Company Number: JP-AMGEN-JPNCT2014040680

PATIENT
  Sex: Male
  Weight: 63 kg

DRUGS (11)
  1. ADALAT [Concomitant]
     Active Substance: NIFEDIPINE
     Dosage: 40 MG, QD
     Route: 048
     Dates: start: 20131203
  2. DENOSUMAB [Suspect]
     Active Substance: DENOSUMAB
     Indication: METASTASES TO BONE
     Dosage: 120 MG, UNK
     Route: 058
     Dates: start: 20140226, end: 20140226
  3. PACLITAXEL. [Concomitant]
     Active Substance: PACLITAXEL
     Dosage: UNK
     Route: 065
     Dates: start: 20131128
  4. ASTOMIN                            /00426502/ [Concomitant]
     Dosage: 30 MG, QD
     Route: 048
     Dates: start: 20131002
  5. MUCODYNE [Concomitant]
     Active Substance: CARBOCYSTEINE
     Dosage: 1500 MG, QD
     Route: 048
     Dates: start: 20131002
  6. MAGMITT [Concomitant]
     Active Substance: MAGNESIUM OXIDE
     Dosage: 1500 MG, QD
     Route: 048
     Dates: start: 20131202
  7. ADALAT CRONO [Concomitant]
     Active Substance: NIFEDIPINE
     Dosage: 40 MG, QD
     Route: 048
     Dates: start: 20131203
  8. DOCETAXEL. [Concomitant]
     Active Substance: DOCETAXEL
     Dosage: UNK
     Route: 065
     Dates: start: 20131128, end: 20140226
  9. CERCINE [Concomitant]
     Active Substance: DIAZEPAM
     Dosage: 2 MG, AS NECESSARY
     Route: 048
     Dates: start: 20140319
  10. DENOTAS [Concomitant]
     Active Substance: CALCIUM CARBONATE\CHOLECALCIFEROL\MAGNESIUM CARBONATE
     Dosage: 4 DF, QD
     Route: 048
     Dates: start: 20140226
  11. HUSTAZOL                           /00398402/ [Concomitant]
     Dosage: 20 MG, AS NECESSARY
     Route: 048

REACTIONS (4)
  - Hypocalcaemia [Recovered/Resolved]
  - Confusional state [Recovered/Resolved]
  - Hypokalaemia [Recovered/Resolved]
  - Hypophosphataemia [Recovered/Resolved]

NARRATIVE: CASE EVENT DATE: 20140318
